FAERS Safety Report 24081219 (Version 1)
Quarter: 2024Q3

REPORT INFORMATION
  Report Type: Spontaneous
  Country: IT (occurrence: IT)
  Receive Date: 20240711
  Receipt Date: 20240711
  Transmission Date: 20241016
  Serious: No
  Sender: APELLIS PHARMACEUTICALS
  Company Number: IT-BIOVITRUM-2023-IT-021223

PATIENT

DRUGS (1)
  1. PEGCETACOPLAN [Suspect]
     Active Substance: PEGCETACOPLAN
     Indication: Paroxysmal nocturnal haemoglobinuria
     Dosage: CLINICIAN RECOMMENDED THAT THE PATIENT TO ADJUST THE DOSE AS REQUIRED BY SMPC EVERY 3 DAYS.
     Route: 058
     Dates: start: 20230529

REACTIONS (4)
  - Haemoglobin decreased [Unknown]
  - Drug ineffective [Unknown]
  - Blood lactate dehydrogenase increased [Unknown]
  - Infection [Not Recovered/Not Resolved]
